FAERS Safety Report 25330481 (Version 1)
Quarter: 2025Q2

REPORT INFORMATION
  Report Type: Spontaneous
  Country: US (occurrence: US)
  Receive Date: 20250519
  Receipt Date: 20250519
  Transmission Date: 20250717
  Serious: Yes (Other)
  Sender: IPCA
  Company Number: US-IPCA LABORATORIES LIMITED-IPC-2025-US-001279

PATIENT

DRUGS (1)
  1. HYDROXYCHLOROQUINE [Suspect]
     Active Substance: HYDROXYCHLOROQUINE
     Indication: Systemic lupus erythematosus
     Route: 065

REACTIONS (4)
  - Cardiotoxicity [Recovered/Resolved]
  - Myocardial infarction [Recovered/Resolved]
  - Coronary artery disease [Recovered/Resolved]
  - Atrioventricular block second degree [Recovered/Resolved]
